FAERS Safety Report 21044895 (Version 1)
Quarter: 2022Q3

REPORT INFORMATION
  Report Type: Spontaneous
  Country: US (occurrence: US)
  Receive Date: 20220705
  Receipt Date: 20220705
  Transmission Date: 20221026
  Serious: No
  Sender: FDA-Public Use
  Company Number: US-UPSHER-SMITH LABORATORIES, LLC-2022USL00214

PATIENT
  Age: 71 Year
  Sex: Male

DRUGS (2)
  1. TESTOSTERONE [Suspect]
     Active Substance: TESTOSTERONE
     Dosage: 50 MG, 1X/DAY, IN THE EVENING
     Route: 061
     Dates: end: 202201
  2. TESTOSTERONE [Suspect]
     Active Substance: TESTOSTERONE
     Dosage: 50 MG, 1X/DAY, IN THE MORNING
     Route: 061
     Dates: start: 202202

REACTIONS (2)
  - Blood testosterone increased [Recovered/Resolved]
  - Unevaluable event [Unknown]

NARRATIVE: CASE EVENT DATE: 20220101
